FAERS Safety Report 5198883-3 (Version None)
Quarter: 2007Q1

REPORT INFORMATION
  Report Type: 
  Country: None (occurrence: None)
  Receive Date: 20070104
  Receipt Date: 20061212
  Transmission Date: 20070707
  Serious: Yes (Hospitalization)
  Sender: FDA-Public Use
  Company Number: FR-GILEAD-2006-0010827

PATIENT
  Age: 50 Year
  Sex: Female

DRUGS (11)
  1. HEPSERA [Suspect]
     Indication: HEPATITIS B
     Route: 048
     Dates: start: 20040325, end: 20041028
  2. ZEFFIX [Suspect]
     Indication: HEPATITIS B
     Dates: start: 20040713
  3. NEORAL [Concomitant]
  4. EPREX [Concomitant]
  5. FUROSEMIDE [Concomitant]
  6. SECTRAL [Concomitant]
  7. MEDIATENSYL [Concomitant]
  8. NOCTRAN [Concomitant]
  9. RENAGEL [Concomitant]
  10. EUCALCIC [Concomitant]
  11. VENOFER [Concomitant]

REACTIONS (2)
  - NEPHROPATHY TOXIC [None]
  - RENAL FAILURE CHRONIC [None]
